FAERS Safety Report 11387718 (Version 2)
Quarter: 2017Q1

REPORT INFORMATION
  Report Type: Spontaneous
  Country: US (occurrence: US)
  Receive Date: 20150817
  Receipt Date: 20170126
  Transmission Date: 20170428
  Serious: Yes (Hospitalization, Other)
  Sender: FDA-Public Use
  Company Number: US-MYLANLABS-2015M1026456

PATIENT

DRUGS (12)
  1. TACROLIMUS. [Concomitant]
     Active Substance: TACROLIMUS
     Indication: IMMUNOSUPPRESSION
     Dosage: 1.5 MG, BID
     Route: 048
  2. MYCOPHENOLIC ACID DELAYED-RELEASE TABLETS [Suspect]
     Active Substance: MYCOPHENOLIC ACID
     Indication: IMMUNOSUPPRESSION
     Dosage: 360 MG, BID
     Dates: start: 20140826, end: 201502
  3. DOCUSATE SODIUM. [Concomitant]
     Active Substance: DOCUSATE SODIUM
     Indication: PRODUCT USED FOR UNKNOWN INDICATION
     Dosage: 100 MG, QD
  4. OMEGA 3 DHA                        /06822501/ [Concomitant]
     Indication: IMMUNOSUPPRESSION
     Dosage: 1 G, BID
     Route: 048
  5. SULFAMETHOXAZOLE\TRIMETHOPRIM [Concomitant]
     Active Substance: SULFAMETHOXAZOLE\TRIMETHOPRIM
     Indication: INFECTION PROPHYLAXIS
     Dosage: 400 MG, 3XW
     Route: 048
  6. OMEPRAZOLE. [Concomitant]
     Active Substance: OMEPRAZOLE
     Indication: PRODUCT USED FOR UNKNOWN INDICATION
     Dosage: 20 MG, QD
     Route: 048
  7. MYCOPHENOLIC ACID DELAYED-RELEASE TABLETS [Suspect]
     Active Substance: MYCOPHENOLIC ACID
     Dosage: 720 MG, BID
     Route: 048
     Dates: start: 201508, end: 201510
  8. VALGANCICLOVIR. [Concomitant]
     Active Substance: VALGANCICLOVIR
     Indication: INFECTION PROPHYLAXIS
     Dosage: 450 MG, QD
     Route: 048
  9. MYCOPHENOLIC ACID DELAYED-RELEASE TABLETS [Suspect]
     Active Substance: MYCOPHENOLIC ACID
     Dosage: 540 MG, BID
     Dates: start: 201502, end: 201508
  10. ASPIRIN                            /00002701/ [Concomitant]
     Active Substance: ASPIRIN
     Indication: PRODUCT USED FOR UNKNOWN INDICATION
     Dosage: 81 MG, QD
     Route: 048
  11. MYCOPHENOLIC ACID DELAYED-RELEASE TABLETS [Suspect]
     Active Substance: MYCOPHENOLIC ACID
     Dosage: 360 MG, BID
     Route: 048
     Dates: start: 201510
  12. SODIUM BICARBONATE. [Concomitant]
     Active Substance: SODIUM BICARBONATE
     Indication: METABOLIC ACIDOSIS
     Dosage: 650 MG, QD
     Route: 048

REACTIONS (6)
  - Transplant rejection [Unknown]
  - Herpes zoster [Recovered/Resolved]
  - Diarrhoea [Recovered/Resolved]
  - Pyelonephritis [Not Recovered/Not Resolved]
  - Condition aggravated [Unknown]
  - Urinary tract infection [Not Recovered/Not Resolved]

NARRATIVE: CASE EVENT DATE: 20141001
